FAERS Safety Report 16270817 (Version 2)
Quarter: 2019Q2

REPORT INFORMATION
  Report Type: Spontaneous
  Country: US (occurrence: US)
  Receive Date: 20190505
  Receipt Date: 20190523
  Transmission Date: 20190711
  Serious: No
  Sender: FDA-Public Use
  Company Number: US-JNJFOC-20190427950

PATIENT
  Age: 74 Year
  Sex: Female
  Weight: 58.06 kg

DRUGS (1)
  1. STELARA [Suspect]
     Active Substance: USTEKINUMAB
     Indication: PSORIASIS
     Route: 058
     Dates: start: 20140311, end: 20190411

REACTIONS (4)
  - Weight decreased [Unknown]
  - Therapeutic response decreased [Recovered/Resolved]
  - Psoriasis [Unknown]
  - Drug specific antibody [Recovered/Resolved]

NARRATIVE: CASE EVENT DATE: 20190327
